FAERS Safety Report 15786050 (Version 1)
Quarter: 2019Q1

REPORT INFORMATION
  Report Type: Spontaneous
  Country: US (occurrence: US)
  Receive Date: 20190103
  Receipt Date: 20190103
  Transmission Date: 20190417
  Serious: No
  Sender: FDA-Public Use
  Company Number: US-SA-2019SA001028

PATIENT
  Age: 42 Year
  Sex: Male
  Weight: 72.56 kg

DRUGS (9)
  1. HEPARIN [Concomitant]
     Active Substance: HEPARIN SODIUM
     Dosage: 100 UN/ML
     Route: 041
     Dates: start: 20180811
  2. NORMAL SALINE [Concomitant]
     Active Substance: SODIUM CHLORIDE
     Dosage: 0.9 %
     Route: 041
     Dates: start: 20180811
  3. SODIUM CHLORIDE. [Concomitant]
     Active Substance: SODIUM CHLORIDE
     Dosage: 0.9 %
     Route: 041
     Dates: start: 20180811
  4. FABRAZYME [Suspect]
     Active Substance: AGALSIDASE BETA
     Dosage: 75 MG, QOW
     Route: 041
     Dates: start: 20180811
  5. OMEPRAZOLE. [Concomitant]
     Active Substance: OMEPRAZOLE
     Dosage: 40 MG
     Route: 048
     Dates: start: 20180810
  6. BENADRYL [Concomitant]
     Active Substance: DIPHENHYDRAMINE HYDROCHLORIDE
     Route: 065
  7. ACETAMINOPHEN. [Concomitant]
     Active Substance: ACETAMINOPHEN
     Dosage: 1000 MG
     Route: 048
     Dates: start: 20180811
  8. DIPHENHYDRAMINE. [Concomitant]
     Active Substance: DIPHENHYDRAMINE
     Dosage: 25 MG
     Route: 048
     Dates: start: 20180811
  9. EPINEPHRINE. [Concomitant]
     Active Substance: EPINEPHRINE
     Dosage: .3 MG
     Route: 030
     Dates: start: 20180811

REACTIONS (1)
  - Pruritus [Unknown]
